FAERS Safety Report 20406710 (Version 6)
Quarter: 2022Q4

REPORT INFORMATION
  Report Type: Spontaneous
  Country: US (occurrence: US)
  Receive Date: 20220131
  Receipt Date: 20221214
  Transmission Date: 20230113
  Serious: No
  Sender: FDA-Public Use
  Company Number: US-PFIZER INC-202101513403

PATIENT
  Age: 52 Year
  Sex: Male
  Weight: 112.49 kg

DRUGS (2)
  1. XELJANZ XR [Suspect]
     Active Substance: TOFACITINIB CITRATE
     Indication: Rheumatoid arthritis
     Dosage: 11 MG
  2. XELJANZ XR [Suspect]
     Active Substance: TOFACITINIB CITRATE
     Indication: Fibromyalgia
     Dosage: 11 MG, 1X/DAY (ONCE A DAY 90 DAYS)
     Route: 048

REACTIONS (9)
  - Blood pressure abnormal [Unknown]
  - Irritable bowel syndrome [Unknown]
  - Temporomandibular joint syndrome [Unknown]
  - Pruritus [Unknown]
  - Burning sensation [Unknown]
  - Skin exfoliation [Unknown]
  - Dermatitis [Recovering/Resolving]
  - Diarrhoea [Recovered/Resolved]
  - Rhinorrhoea [Recovering/Resolving]
